FAERS Safety Report 11062098 (Version 1)
Quarter: 2015Q2

REPORT INFORMATION
  Report Type: Spontaneous
  Country: US (occurrence: US)
  Receive Date: 20150424
  Receipt Date: 20150424
  Transmission Date: 20150821
  Serious: No
  Sender: FDA-Public Use
  Company Number: US-CELGENEUS-USA-2015034252

PATIENT
  Sex: Female
  Weight: 74.91 kg

DRUGS (2)
  1. REVLIMID [Suspect]
     Active Substance: LENALIDOMIDE
     Route: 048
     Dates: start: 201501
  2. REVLIMID [Suspect]
     Active Substance: LENALIDOMIDE
     Indication: ANAEMIA
     Route: 048
     Dates: start: 20141223

REACTIONS (5)
  - Mobility decreased [Unknown]
  - Eye swelling [Unknown]
  - Treatment failure [Unknown]
  - Lacrimation increased [Unknown]
  - Peripheral swelling [Unknown]
